FAERS Safety Report 4370503-7 (Version None)
Quarter: 2004Q2

REPORT INFORMATION
  Report Type: 
  Country: None (occurrence: None)
  Receive Date: 20040601
  Receipt Date: 20031103
  Transmission Date: 20050107
  Serious: Yes (Other)
  Sender: FDA-Public Use
  Company Number: US048767

PATIENT
  Age: 58 Year
  Sex: Female

DRUGS (2)
  1. ENBREL [Suspect]
     Indication: PSORIATIC ARTHROPATHY
     Dosage: 25 MG TWICE WEEKLY SC
     Dates: start: 19990101
  2. METHOTREXATE [Concomitant]

REACTIONS (1)
  - BREAST CANCER FEMALE [None]
